FAERS Safety Report 8329219-4 (Version None)
Quarter: 2012Q2

REPORT INFORMATION
  Report Type: 
  Country: None (occurrence: None)
  Receive Date: 20120502
  Receipt Date: 20120427
  Transmission Date: 20120825
  Serious: Yes (Death, Hospitalization)
  Sender: FDA-Public Use
  Company Number: ES-AMGEN-ESPNI2012024353

PATIENT
  Age: 79 Year
  Sex: Male

DRUGS (2)
  1. LENALIDOMIDE [Concomitant]
     Dosage: 15 MG, UNK
     Route: 048
     Dates: start: 20111028, end: 20120301
  2. PEGFILGRASTIM [Suspect]
     Indication: MULTIPLE MYELOMA
     Dosage: UNK

REACTIONS (4)
  - MULTIPLE MYELOMA [None]
  - BACTERAEMIA [None]
  - PANCYTOPENIA [None]
  - RENAL FAILURE [None]
